FAERS Safety Report 6116498-7 (Version None)
Quarter: 2009Q1

REPORT INFORMATION
  Report Type: 
  Country: None (occurrence: None)
  Receive Date: 20090314
  Receipt Date: 20081215
  Transmission Date: 20090719
  Serious: No
  Sender: FDA-Public Use
  Company Number: US-ABBOTT-08P-163-0493045-00

PATIENT
  Sex: Male
  Weight: 81.72 kg

DRUGS (2)
  1. HUMIRA [Suspect]
     Indication: PSORIATIC ARTHROPATHY
     Route: 058
     Dates: start: 20080529
  2. ATENOLOL [Concomitant]
     Indication: HYPERTENSION

REACTIONS (5)
  - BACK PAIN [None]
  - INJECTION SITE NODULE [None]
  - INJECTION SITE PRURITUS [None]
  - MUSCLE TIGHTNESS [None]
  - MUSCULOSKELETAL STIFFNESS [None]
